FAERS Safety Report 4588294-3 (Version None)
Quarter: 2005Q1

REPORT INFORMATION
  Report Type: 
  Country: None (occurrence: None)
  Receive Date: 20050222
  Receipt Date: 20050209
  Transmission Date: 20050727
  Serious: Yes (Other)
  Sender: FDA-Public Use
  Company Number: US-JNJFOC-20041007552

PATIENT
  Sex: Female
  Weight: 58.51 kg

DRUGS (25)
  1. REMICADE [Suspect]
     Dosage: 2 VIALS
     Route: 042
  2. REMICADE [Suspect]
     Dosage: 2 VIALS
     Route: 042
  3. REMICADE [Suspect]
     Dosage: 2 VIALS
     Route: 042
  4. REMICADE [Suspect]
     Route: 042
  5. REMICADE [Suspect]
     Route: 042
  6. REMICADE [Suspect]
     Indication: RHEUMATOID ARTHRITIS
     Dosage: 3 INFUSIONS
     Route: 042
  7. PLAQUENIL [Concomitant]
  8. LANOXIN [Concomitant]
  9. CALCIUM/VITAMIN D [Concomitant]
  10. CALCIUM/VITAMIN D [Concomitant]
  11. CALCIUM/VITAMIN D [Concomitant]
  12. FOLIC ACID [Concomitant]
  13. MULTI-VITAMIN [Concomitant]
  14. MULTI-VITAMIN [Concomitant]
  15. MULTI-VITAMIN [Concomitant]
  16. MULTI-VITAMIN [Concomitant]
  17. MULTI-VITAMIN [Concomitant]
  18. MULTI-VITAMIN [Concomitant]
  19. MULTI-VITAMIN [Concomitant]
  20. MULTI-VITAMIN [Concomitant]
  21. FOSAMAX [Concomitant]
  22. TYLENOL (CAPLET) [Concomitant]
  23. DARVOCET-N 100 [Concomitant]
  24. DARVOCET-N 100 [Concomitant]
  25. VIOXX [Concomitant]

REACTIONS (3)
  - BLOOD PRESSURE INCREASED [None]
  - JOINT ARTHROPLASTY [None]
  - PARAESTHESIA [None]
